FAERS Safety Report 7301657-8 (Version None)
Quarter: 2011Q1

REPORT INFORMATION
  Report Type: 
  Country: None (occurrence: None)
  Receive Date: 20110218
  Receipt Date: 20110208
  Transmission Date: 20110831
  Serious: Yes (Hospitalization, Other)
  Sender: FDA-Public Use
  Company Number: US-ELI_LILLY_AND_COMPANY-US200908006112

PATIENT
  Sex: Female
  Weight: 72.109 kg

DRUGS (20)
  1. GEODON [Concomitant]
     Dosage: 40 MG, 4/D
  2. TYLENOL                                 /SCH/ [Concomitant]
     Dosage: 500 MG, EVERY 6 HRS
  3. GEODON [Concomitant]
     Dosage: 40 MG, 2/D
     Route: 048
  4. XANAX [Concomitant]
     Indication: ANXIETY
     Dosage: 1 MG, 3/D
  5. ATIVAN [Concomitant]
  6. CYMBALTA [Suspect]
     Dosage: 60 MG, EACH EVENING
     Dates: start: 20080101, end: 20081218
  7. CYMBALTA [Suspect]
     Dosage: 40 MG, UNK
     Dates: start: 20081218, end: 20081231
  8. CYMBALTA [Suspect]
     Dosage: 15 MG, UNK
     Dates: start: 20090115, end: 20090128
  9. CYMBALTA [Suspect]
     Dosage: 30 MG, UNK
     Dates: start: 20090101, end: 20090114
  10. NEXIUM [Concomitant]
     Dosage: 40 MG, 2/D
     Route: 048
  11. VICODIN [Concomitant]
  12. PROZAC [Suspect]
     Indication: DEPRESSION
  13. LEVOTHYROXINE SODIUM [Concomitant]
     Indication: HYPOTHYROIDISM
     Dosage: 112 UG, UNK
     Route: 048
  14. SINGULAIR [Concomitant]
     Indication: ASTHMA
     Dosage: 10 MG, DAILY (1/D)
  15. GEODON [Concomitant]
     Dosage: 40 MG, 3/D
     Route: 048
  16. ADVAIR [Concomitant]
     Indication: ASTHMA
     Dosage: 1 D/F, 2/D
     Route: 055
  17. CYMBALTA [Suspect]
     Indication: DEPRESSION
     Dosage: 120 MG, DAILY (1/D)
     Dates: start: 20080301, end: 20080101
  18. ENABLEX                            /01760401/ [Concomitant]
     Indication: INCONTINENCE
     Dosage: 15 MG, UNK
  19. WELLBUTRIN [Concomitant]
  20. EFFEXOR [Concomitant]
     Indication: DEPRESSION
     Dosage: 75 MG, 3/D

REACTIONS (19)
  - DEPRESSED MOOD [None]
  - ANGER [None]
  - DRUG CLEARANCE DECREASED [None]
  - DRUG EFFECT INCREASED [None]
  - MALAISE [None]
  - SLEEP DISORDER [None]
  - DISTURBANCE IN ATTENTION [None]
  - SUICIDAL IDEATION [None]
  - DRUG WITHDRAWAL SYNDROME [None]
  - ABNORMAL BEHAVIOUR [None]
  - PAIN IN EXTREMITY [None]
  - SELF INJURIOUS BEHAVIOUR [None]
  - IRRITABILITY [None]
  - FEELING ABNORMAL [None]
  - ANXIETY [None]
  - ROAD TRAFFIC ACCIDENT [None]
  - DECREASED APPETITE [None]
  - WRIST FRACTURE [None]
  - HEPATIC FUNCTION ABNORMAL [None]
